FAERS Safety Report 5426009-7 (Version None)
Quarter: 2007Q3

REPORT INFORMATION
  Report Type: 
  Country: None (occurrence: None)
  Receive Date: 20070823
  Receipt Date: 20070823
  Transmission Date: 20080115
  Serious: Yes (Hospitalization)
  Sender: FDA-Public Use
  Company Number: None

PATIENT
  Sex: Female
  Weight: 61.8 kg

DRUGS (14)
  1. FLUOROURACIL [Suspect]
     Dosage: 975MG IV OVER 30 MINUTES
     Route: 042
     Dates: start: 20070807
  2. FLUOROURACIL [Suspect]
     Dosage: 975MG IV OVER 30 MINUTES
     Route: 042
     Dates: start: 20070808
  3. FLUOROURACIL [Suspect]
     Dosage: 975MG IV OVER 30 MINUTES
     Route: 042
     Dates: start: 20070809
  4. FLUOROURACIL [Suspect]
     Dosage: 975MG IV OVER 30 MINUTES
     Route: 042
     Dates: start: 20070810
  5. DAVANAT 280MG/M2 [Suspect]
     Indication: BILE DUCT CANCER
     Dosage: 465MG IV OVER 30 MINUTES
     Route: 042
     Dates: start: 20070807
  6. DAVANAT 280MG/M2 [Suspect]
     Indication: BILE DUCT CANCER
     Dosage: 465MG IV OVER 30 MINUTES
     Route: 042
     Dates: start: 20070808
  7. DAVANAT 280MG/M2 [Suspect]
     Indication: BILE DUCT CANCER
     Dosage: 465MG IV OVER 30 MINUTES
     Route: 042
     Dates: start: 20070809
  8. DAVANAT 280MG/M2 [Suspect]
     Indication: BILE DUCT CANCER
     Dosage: 465MG IV OVER 30 MINUTES
     Route: 042
     Dates: start: 20070810
  9. ALDACTONE [Concomitant]
  10. GLYBURIDE [Concomitant]
  11. ZOFRAN [Concomitant]
  12. AMBIEN [Concomitant]
  13. ZANTAC 150 [Concomitant]
  14. HYDROCODONE BITARTRATE [Concomitant]

REACTIONS (5)
  - ABDOMINAL PAIN [None]
  - ASCITES [None]
  - HAEMATOCRIT INCREASED [None]
  - PARACENTESIS [None]
  - WHITE BLOOD CELL COUNT INCREASED [None]
